FAERS Safety Report 7878022-8 (Version None)
Quarter: 2011Q4

REPORT INFORMATION
  Report Type: 
  Country: None (occurrence: None)
  Receive Date: 20111031
  Receipt Date: 20111024
  Transmission Date: 20120403
  Serious: Yes (Hospitalization)
  Sender: FDA-Public Use
  Company Number: US-AMGEN-KDL367429

PATIENT
  Age: 69 Year
  Sex: Female

DRUGS (4)
  1. ENBREL [Suspect]
     Dosage: 25 MG, QWK
     Route: 058
     Dates: start: 20050615, end: 20101001
  2. REMICADE [Concomitant]
     Dosage: UNK
  3. ENBREL [Suspect]
     Indication: RHEUMATOID ARTHRITIS
     Dosage: 25 MG, QWK
     Route: 058
  4. PREDNISONE [Concomitant]
     Dosage: UNK

REACTIONS (6)
  - PRURITUS [None]
  - BLOOD CHOLESTEROL INCREASED [None]
  - ERYTHEMA [None]
  - URTICARIA [None]
  - FEELING HOT [None]
  - RENAL DISORDER [None]
